APPROVED DRUG PRODUCT: DONEPEZIL HYDROCHLORIDE
Active Ingredient: DONEPEZIL HYDROCHLORIDE
Strength: 23MG
Dosage Form/Route: TABLET;ORAL
Application: A204293 | Product #001
Applicant: SUN PHARMACEUTICAL INDUSTRIES LTD
Approved: Jun 5, 2015 | RLD: No | RS: No | Type: DISCN